FAERS Safety Report 9948272 (Version 1)
Quarter: 2014Q1

REPORT INFORMATION
  Report Type: Report from Study
  Country: US (occurrence: US)
  Receive Date: 20140303
  Receipt Date: 20140303
  Transmission Date: 20141002
  Serious: No
  Sender: FDA-Public Use
  Company Number: US-ABBVIE-13P-163-1061248-00

PATIENT
  Age: 62 Year
  Sex: Female
  Weight: 53.57 kg

DRUGS (9)
  1. HUMIRA [Suspect]
     Indication: RHEUMATOID ARTHRITIS
     Dates: start: 2009
  2. ARAVA [Concomitant]
     Indication: RHEUMATOID ARTHRITIS
  3. POTASSIUM [Concomitant]
     Indication: BLOOD POTASSIUM ABNORMAL
  4. TRAZODONE [Concomitant]
     Indication: DEPRESSION
  5. UNKNOWN DIURETIC [Concomitant]
     Indication: FLUID RETENTION
  6. PAROXETINE [Concomitant]
     Indication: DEPRESSION
  7. LEVOTHYROXINE [Concomitant]
     Indication: THYROID DISORDER
  8. ATENOLOL [Concomitant]
     Indication: HYPERTENSION
  9. FOLIC ACID [Concomitant]
     Indication: VITAMIN SUPPLEMENTATION

REACTIONS (5)
  - Pyrexia [Recovered/Resolved]
  - Viral infection [Not Recovered/Not Resolved]
  - Pain [Not Recovered/Not Resolved]
  - Diarrhoea [Not Recovered/Not Resolved]
  - Nasal congestion [Not Recovered/Not Resolved]
